APPROVED DRUG PRODUCT: PACLITAXEL
Active Ingredient: PACLITAXEL
Strength: 6MG/ML
Dosage Form/Route: INJECTABLE;INJECTION
Application: A207326 | Product #001 | TE Code: AP
Applicant: GLAND PHARMA LTD
Approved: Aug 23, 2016 | RLD: No | RS: No | Type: RX